FAERS Safety Report 7875510-5 (Version None)
Quarter: 2011Q4

REPORT INFORMATION
  Report Type: 
  Country: None (occurrence: None)
  Receive Date: 20111031
  Receipt Date: 20111021
  Transmission Date: 20120403
  Serious: Yes (Other)
  Sender: FDA-Public Use
  Company Number: PHHY2009TR60164

PATIENT
  Age: 34 Year
  Sex: Female

DRUGS (2)
  1. DILTIAZEM HCL [Suspect]
     Dosage: 25 MG
  2. METOPROLOL TARTRATE [Suspect]
     Indication: VENTRICULAR TACHYCARDIA
     Dosage: 5 MG
     Route: 042

REACTIONS (3)
  - DRUG INEFFECTIVE [None]
  - MATERNAL EXPOSURE DURING PREGNANCY [None]
  - VENTRICULAR TACHYCARDIA [None]
